FAERS Safety Report 6831184-3 (Version None)
Quarter: 2010Q3

REPORT INFORMATION
  Report Type: 
  Country: None (occurrence: None)
  Receive Date: 20100709
  Receipt Date: 20100709
  Transmission Date: 20110219
  Serious: Yes (Life-Threatening, Hospitalization)
  Sender: FDA-Public Use
  Company Number: None

PATIENT
  Age: 52 Year
  Sex: Female
  Weight: 53.5 kg

DRUGS (3)
  1. TRAZODONE HCL [Suspect]
     Indication: DEPRESSION
     Dosage: DAILY
  2. PRISTIQ [Suspect]
     Indication: DEPRESSION
     Dosage: DAILY
  3. RELPAX [Concomitant]

REACTIONS (7)
  - AGITATION [None]
  - BODY TEMPERATURE INCREASED [None]
  - CONFUSIONAL STATE [None]
  - HALLUCINATION [None]
  - MENTAL STATUS CHANGES [None]
  - MUSCLE TWITCHING [None]
  - SEROTONIN SYNDROME [None]
